FAERS Safety Report 21996243 (Version 1)
Quarter: 2023Q1

REPORT INFORMATION
  Report Type: Spontaneous
  Country: GB (occurrence: None)
  Receive Date: 20230215
  Receipt Date: 20230215
  Transmission Date: 20230417
  Serious: Yes (Hospitalization, Other)
  Sender: FDA-Public Use
  Company Number: GB-MHRA-MED-202302021506270480-FDZJC

PATIENT
  Age: 39 Year
  Sex: Female

DRUGS (6)
  1. LEUCOVORIN [Suspect]
     Active Substance: LEUCOVORIN
     Indication: Product used for unknown indication
     Dosage: 700 MG IN 250 ML GLUCOSE, OVER TWO HOURS
     Route: 041
     Dates: start: 20230123
  2. IRINOTECAN [Suspect]
     Active Substance: IRINOTECAN
     Indication: Product used for unknown indication
     Dosage: 360 MG IN 250 ML GLUCOSE, OVER 90 MINUTES
     Route: 041
     Dates: start: 20230123
  3. ATROPINE [Suspect]
     Active Substance: ATROPINE
     Indication: Cholinergic syndrome
     Dosage: UNKNOWN
     Route: 058
     Dates: start: 20230123
  4. DEXAMETHASONE [Suspect]
     Active Substance: DEXAMETHASONE
     Indication: Adverse drug reaction
     Dosage: SINGLE DOSE
     Dates: start: 20230123
  5. OXALIPLATIN [Suspect]
     Active Substance: OXALIPLATIN
     Indication: Product used for unknown indication
     Dosage: 200 MG IN 250 ML OF GLUCOSE, OVER TWO HOURS
     Route: 041
     Dates: start: 20230123
  6. AKYNZEO (NETUPITANT\PALONOSETRON) [Suspect]
     Active Substance: NETUPITANT\PALONOSETRON
     Indication: Product used for unknown indication
     Dosage: 0.5 MG (SINGLE DOSE)
     Route: 048
     Dates: start: 20230123

REACTIONS (3)
  - Colitis [Recovering/Resolving]
  - Neutropenic sepsis [Recovering/Resolving]
  - Cholinergic syndrome [Unknown]

NARRATIVE: CASE EVENT DATE: 20230123
